FAERS Safety Report 5899025-9 (Version None)
Quarter: 2008Q3

REPORT INFORMATION
  Report Type: 
  Country: None (occurrence: None)
  Receive Date: 20080925
  Receipt Date: 20080915
  Transmission Date: 20090109
  Serious: Yes (Other)
  Sender: FDA-Public Use
  Company Number: BR-PFIZER INC-2008078436

PATIENT
  Sex: Female
  Weight: 75 kg

DRUGS (1)
  1. DOSTINEX [Suspect]
     Indication: BLOOD PROLACTIN ABNORMAL
     Route: 048
     Dates: start: 20070101

REACTIONS (5)
  - DRUG DEPENDENCE [None]
  - OPTIC NERVE DISORDER [None]
  - TUMOUR HAEMORRHAGE [None]
  - VISION BLURRED [None]
  - WEIGHT INCREASED [None]
